FAERS Safety Report 8309329-8 (Version None)
Quarter: 2012Q2

REPORT INFORMATION
  Report Type: 
  Country: None (occurrence: None)
  Receive Date: 20120425
  Receipt Date: 20120419
  Transmission Date: 20120825
  Serious: Yes (Death, Other)
  Sender: FDA-Public Use
  Company Number: US-ASTRAZENECA-2010SE08541

PATIENT
  Age: 36733 Day
  Sex: Female

DRUGS (1)
  1. NEXIUM [Suspect]
     Route: 048

REACTIONS (3)
  - DEATH [None]
  - SYSTEMIC LUPUS ERYTHEMATOSUS [None]
  - COMPRESSION FRACTURE [None]
